FAERS Safety Report 20221349 (Version 1)
Quarter: 2021Q4

REPORT INFORMATION
  Report Type: Report from Study
  Country: PA (occurrence: PA)
  Receive Date: 20211223
  Receipt Date: 20211223
  Transmission Date: 20220303
  Serious: Yes (Other)
  Sender: FDA-Public Use
  Company Number: PA-NOVARTISPH-NVSC2021PA251796

PATIENT
  Age: 55 Year
  Sex: Female

DRUGS (3)
  1. KISQALI [Suspect]
     Active Substance: RIBOCICLIB
     Indication: Breast cancer metastatic
     Dosage: 3 DF, QD (IN THE MORNING)
     Route: 048
     Dates: start: 202101
  2. KISQALI [Suspect]
     Active Substance: RIBOCICLIB
     Indication: Breast cancer
     Dosage: 400 MG (2 TABS), QD (AT NOON)
     Route: 048
     Dates: start: 202104
  3. FULVESTRANT [Suspect]
     Active Substance: FULVESTRANT
     Indication: Product used for unknown indication
     Dosage: 2 DOSAGE FORM (INJECTION), QMO
     Route: 065

REACTIONS (7)
  - Metastases to neck [Unknown]
  - Feeling abnormal [Unknown]
  - Anxiety [Recovered/Resolved]
  - Malaise [Recovered/Resolved]
  - Laziness [Recovered/Resolved]
  - Asthenia [Recovered/Resolved]
  - Inappropriate schedule of product administration [Unknown]

NARRATIVE: CASE EVENT DATE: 20210601
